FAERS Safety Report 5965628-6 (Version None)
Quarter: 2008Q4

REPORT INFORMATION
  Report Type: 
  Country: None (occurrence: None)
  Receive Date: 20081119
  Receipt Date: 20080728
  Transmission Date: 20090506
  Serious: Yes (Life-Threatening)
  Sender: FDA-Public Use
  Company Number: 2008S1013245

PATIENT
  Age: 49 Year
  Sex: Male

DRUGS (17)
  1. CISPLATIN [Suspect]
     Indication: DIFFUSE LARGE B-CELL LYMPHOMA
     Dosage: 25 MG/M2,
  2. ETOPOSIDE [Suspect]
     Indication: DIFFUSE LARGE B-CELL LYMPHOMA
     Dosage: 40 MG/M2;
  3. WARFARIN SODIUM [Suspect]
     Indication: THROMBOSIS PROPHYLAXIS
     Dosage: 3 MG DAILY;
  4. RITUXIMAB (RITUXIMAB) [Concomitant]
  5. CYCLOPHOSPHAMIDE [Concomitant]
  6. DOXORUBICIN HCL [Concomitant]
  7. VINCRISTINE [Concomitant]
  8. PREDNISONE [Concomitant]
  9. RITUXIMAB (RITUXIMAB) [Concomitant]
  10. CYTARABINE [Concomitant]
  11. METHYLPREDNISOLONE 16MG TAB [Concomitant]
  12. ZONISAMIDE [Concomitant]
  13. NIZATIDINE [Concomitant]
  14. TEPRENONE (TEPRENONE) [Concomitant]
  15. FLUCONAZOLE [Concomitant]
  16. BACTRIM [Concomitant]
  17. BUCOLOME (BUCOLOME) [Concomitant]

REACTIONS (2)
  - DRUG INTERACTION [None]
  - INTERNATIONAL NORMALISED RATIO INCREASED [None]
